FAERS Safety Report 6415275-7 (Version None)
Quarter: 2009Q4

REPORT INFORMATION
  Report Type: 
  Country: None (occurrence: None)
  Receive Date: 20091027
  Receipt Date: 20091021
  Transmission Date: 20100525
  Serious: Yes (Hospitalization, Disabling)
  Sender: FDA-Public Use
  Company Number: CA-WYE-G04676809

PATIENT
  Age: 46 Year
  Sex: Female

DRUGS (3)
  1. PRISTIQ [Suspect]
     Indication: BIPOLAR I DISORDER
     Route: 048
     Dates: start: 20090801, end: 20091001
  2. PRISTIQ [Suspect]
     Route: 048
     Dates: start: 20091001
  3. OLANZAPINE [Concomitant]
     Dosage: UNKNOWN
     Dates: start: 20090801, end: 20090101

REACTIONS (12)
  - AFFECT LABILITY [None]
  - ANXIETY [None]
  - CONDITION AGGRAVATED [None]
  - DRUG DOSE OMISSION [None]
  - DRUG WITHDRAWAL SYNDROME [None]
  - HEADACHE [None]
  - IMPAIRED DRIVING ABILITY [None]
  - IMPAIRED WORK ABILITY [None]
  - MALAISE [None]
  - MIGRAINE [None]
  - NAUSEA [None]
  - VOMITING [None]
